FAERS Safety Report 23804263 (Version 1)
Quarter: 2024Q2

REPORT INFORMATION
  Report Type: Spontaneous
  Country: CN (occurrence: CN)
  Receive Date: 20240501
  Receipt Date: 20240501
  Transmission Date: 20240716
  Serious: Yes (Hospitalization)
  Sender: FDA-Public Use
  Company Number: CN-ORGANON-O2404CHN003626

PATIENT
  Age: 60 Year
  Sex: Male
  Weight: 78.5 kg

DRUGS (2)
  1. EZETIMIBE [Suspect]
     Active Substance: EZETIMIBE
     Indication: Hyperlipidaemia
     Dosage: 1 TAB, QD, PO||
     Route: 048
     Dates: start: 20240424, end: 20240428
  2. FLUPENTIXOL\MELITRACEN [Suspect]
     Active Substance: FLUPENTIXOL\MELITRACEN
     Indication: Anxiety
     Dosage: 1 TAB, QD, PO||
     Route: 048
     Dates: start: 20240424, end: 20240428

REACTIONS (1)
  - Drug eruption [Recovering/Resolving]

NARRATIVE: CASE EVENT DATE: 20240426
